FAERS Safety Report 6263424-6 (Version None)
Quarter: 2009Q3

REPORT INFORMATION
  Report Type: 
  Country: None (occurrence: None)
  Receive Date: 20090710
  Receipt Date: 20090302
  Transmission Date: 20100115
  Serious: No
  Sender: FDA-Public Use
  Company Number: A0763445A

PATIENT
  Age: 66 Year
  Sex: Female

DRUGS (5)
  1. FLOVENT [Suspect]
     Indication: ASTHMA
     Dosage: 2PUFF THREE TIMES PER DAY
     Route: 055
  2. SINGULAIR [Concomitant]
  3. ALDACTONE [Concomitant]
  4. SEREVENT [Concomitant]
  5. XOPENEX [Concomitant]
     Route: 055

REACTIONS (5)
  - DYSPHONIA [None]
  - PHARYNGEAL DISORDER [None]
  - PRODUCT QUALITY ISSUE [None]
  - SPEECH DISORDER [None]
  - THROAT IRRITATION [None]
